FAERS Safety Report 5488175-7 (Version None)
Quarter: 2007Q3

REPORT INFORMATION
  Report Type: 
  Country: None (occurrence: None)
  Receive Date: 20070927
  Receipt Date: 20061229
  Transmission Date: 20080115
  Serious: Yes (Hospitalization)
  Sender: FDA-Public Use
  Company Number: FABR-11754

PATIENT
  Age: 47 Year
  Sex: Male
  Weight: 91.173 kg

DRUGS (8)
  1. FABRAZYME [Suspect]
     Indication: FABRY'S DISEASE
     Dosage: 95 MG Q2WKS IV
     Route: 042
     Dates: start: 20050707
  2. FABRAZYME [Suspect]
     Indication: FABRY'S DISEASE
     Dosage: 1 MG/KG Q2WKS IV
     Route: 042
     Dates: start: 20040120, end: 20050525
  3. ZETIA [Concomitant]
  4. ALLOPURINOL [Concomitant]
  5. LEXAPRO [Concomitant]
  6. WELLBUTRIN XL [Concomitant]
  7. LIPITOR [Concomitant]
  8. FABRAZYME [Suspect]

REACTIONS (5)
  - CHEST DISCOMFORT [None]
  - CHILLS [None]
  - HEADACHE [None]
  - PAIN [None]
  - PYREXIA [None]
